FAERS Safety Report 8854984 (Version 5)
Quarter: 2013Q3

REPORT INFORMATION
  Report Type: Report from Study
  Country: JP (occurrence: JP)
  Receive Date: 20121023
  Receipt Date: 20130830
  Transmission Date: 20140515
  Serious: Yes (Disabling)
  Sender: FDA-Public Use
  Company Number: JP-AMGEN-JPNSP2012066819

PATIENT
  Age: 62 Year
  Sex: Female
  Weight: 42 kg

DRUGS (16)
  1. DENOSUMAB [Suspect]
     Indication: METASTASES TO BONE
     Dosage: 120 MG, QMO
     Route: 058
     Dates: start: 20120529, end: 20120828
  2. ZOMETA [Suspect]
     Indication: METASTASES TO BONE
     Route: 042
     Dates: start: 20090616, end: 20120424
  3. HALAVEN [Concomitant]
     Indication: METASTASES TO BONE
     Dosage: 1.8 MG, UNK
     Route: 065
     Dates: start: 20110727, end: 20120918
  4. HYSRON H [Concomitant]
     Indication: METASTASES TO BONE
     Dosage: UNK
     Route: 065
     Dates: start: 20110222, end: 20121023
  5. ASPARA-CA [Concomitant]
     Indication: OSTEOPOROSIS
     Dosage: UNK
     Route: 048
     Dates: start: 20120626, end: 20121008
  6. EDIROL [Concomitant]
     Indication: OSTEOPOROSIS
     Dosage: UNK
     Route: 048
     Dates: start: 20120626, end: 20121008
  7. CETILO [Concomitant]
     Route: 048
     Dates: start: 20090613
  8. MAGMITT [Concomitant]
     Indication: CONSTIPATION
     Dosage: UNK
     Route: 048
     Dates: start: 20090613, end: 20120911
  9. EURODIN [Concomitant]
     Indication: INSOMNIA
     Dosage: UNK
     Route: 048
     Dates: start: 20061109
  10. PRIMPERAN [Concomitant]
     Indication: GASTRITIS
     Dosage: UNK
     Route: 048
     Dates: start: 20111025, end: 20120911
  11. INTEBAN [Concomitant]
     Indication: CANCER PAIN
     Dosage: UNK
     Route: 050
     Dates: start: 20090630
  12. LOXONIN [Concomitant]
     Indication: CANCER PAIN
     Dosage: UNK
     Route: 048
     Dates: start: 20110531
  13. SEDES G [Concomitant]
     Indication: AUTONOMIC NEUROPATHY
     Dosage: UNK
     Route: 048
     Dates: start: 20120515
  14. FARESTON [Concomitant]
     Dosage: UNK
     Route: 065
     Dates: start: 20121024
  15. SEROTONE [Concomitant]
     Dosage: UNK
     Route: 048
     Dates: start: 20111004, end: 20120619
  16. FERO-GRADUMET [Concomitant]
     Route: 048
     Dates: start: 20111025, end: 20120619

REACTIONS (1)
  - Osteonecrosis of jaw [Not Recovered/Not Resolved]
